FAERS Safety Report 19159950 (Version 2)
Quarter: 2021Q2

REPORT INFORMATION
  Report Type: Report from Study
  Country: GR (occurrence: GR)
  Receive Date: 20210420
  Receipt Date: 20210611
  Transmission Date: 20210717
  Serious: Yes (Hospitalization)
  Sender: FDA-Public Use
  Company Number: GR-TAKEDA-2021TUS024010

PATIENT
  Age: 14 Year
  Sex: Male
  Weight: 69 kg

DRUGS (18)
  1. PEGYLATED COAGULATION FACTOR VIII [Suspect]
     Active Substance: ANTIHEMOPHILIC FACTOR, PEGYLATED (MW 20000) HUMAN SEQUENCE RECOMBINANT
     Indication: PROPHYLAXIS
     Dosage: 2500 INTERNATIONAL UNIT
     Route: 042
     Dates: start: 20200624
  2. PEGYLATED COAGULATION FACTOR VIII [Suspect]
     Active Substance: ANTIHEMOPHILIC FACTOR, PEGYLATED (MW 20000) HUMAN SEQUENCE RECOMBINANT
     Dosage: 2000 INTERNATIONAL UNIT, QD
     Route: 042
     Dates: start: 20200624, end: 20200626
  3. PEGYLATED COAGULATION FACTOR VIII [Suspect]
     Active Substance: ANTIHEMOPHILIC FACTOR, PEGYLATED (MW 20000) HUMAN SEQUENCE RECOMBINANT
     Dosage: 2500 INTERNATIONAL UNIT
     Route: 042
     Dates: start: 20200624
  4. PEGYLATED COAGULATION FACTOR VIII [Suspect]
     Active Substance: ANTIHEMOPHILIC FACTOR, PEGYLATED (MW 20000) HUMAN SEQUENCE RECOMBINANT
     Dosage: 2500 INTERNATIONAL UNIT
     Route: 042
     Dates: start: 20200624
  5. PEGYLATED COAGULATION FACTOR VIII [Suspect]
     Active Substance: ANTIHEMOPHILIC FACTOR, PEGYLATED (MW 20000) HUMAN SEQUENCE RECOMBINANT
     Dosage: 2500 INTERNATIONAL UNIT, SINGLE
     Route: 042
     Dates: start: 20200626, end: 20200626
  6. PEGYLATED COAGULATION FACTOR VIII [Suspect]
     Active Substance: ANTIHEMOPHILIC FACTOR, PEGYLATED (MW 20000) HUMAN SEQUENCE RECOMBINANT
     Dosage: 2500 INTERNATIONAL UNIT, SINGLE
     Route: 042
     Dates: start: 20200626, end: 20200626
  7. PEGYLATED COAGULATION FACTOR VIII [Suspect]
     Active Substance: ANTIHEMOPHILIC FACTOR, PEGYLATED (MW 20000) HUMAN SEQUENCE RECOMBINANT
     Indication: PROPHYLAXIS
     Dosage: 2500 INTERNATIONAL UNIT
     Route: 042
     Dates: start: 20200624
  8. PEGYLATED COAGULATION FACTOR VIII [Suspect]
     Active Substance: ANTIHEMOPHILIC FACTOR, PEGYLATED (MW 20000) HUMAN SEQUENCE RECOMBINANT
     Dosage: 2500 INTERNATIONAL UNIT, SINGLE
     Route: 042
     Dates: start: 20200626, end: 20200626
  9. PEGYLATED COAGULATION FACTOR VIII [Suspect]
     Active Substance: ANTIHEMOPHILIC FACTOR, PEGYLATED (MW 20000) HUMAN SEQUENCE RECOMBINANT
     Dosage: 2500 INTERNATIONAL UNIT, SINGLE
     Route: 042
     Dates: start: 20200626, end: 20200626
  10. PEGYLATED COAGULATION FACTOR VIII [Suspect]
     Active Substance: ANTIHEMOPHILIC FACTOR, PEGYLATED (MW 20000) HUMAN SEQUENCE RECOMBINANT
     Indication: PROPHYLAXIS
     Dosage: 2500 INTERNATIONAL UNIT
     Route: 042
     Dates: start: 20200624
  11. PEGYLATED COAGULATION FACTOR VIII [Suspect]
     Active Substance: ANTIHEMOPHILIC FACTOR, PEGYLATED (MW 20000) HUMAN SEQUENCE RECOMBINANT
     Dosage: 2500 INTERNATIONAL UNIT
     Route: 042
     Dates: start: 20200624
  12. PEGYLATED COAGULATION FACTOR VIII [Suspect]
     Active Substance: ANTIHEMOPHILIC FACTOR, PEGYLATED (MW 20000) HUMAN SEQUENCE RECOMBINANT
     Dosage: 2500 INTERNATIONAL UNIT, SINGLE
     Route: 042
     Dates: start: 20200626, end: 20200626
  13. PEGYLATED COAGULATION FACTOR VIII [Suspect]
     Active Substance: ANTIHEMOPHILIC FACTOR, PEGYLATED (MW 20000) HUMAN SEQUENCE RECOMBINANT
     Dosage: 2000 INTERNATIONAL UNIT, QD
     Route: 042
     Dates: start: 20200624, end: 20200626
  14. PEGYLATED COAGULATION FACTOR VIII [Suspect]
     Active Substance: ANTIHEMOPHILIC FACTOR, PEGYLATED (MW 20000) HUMAN SEQUENCE RECOMBINANT
     Dosage: 2500 INTERNATIONAL UNIT
     Route: 042
     Dates: start: 20200624
  15. PEGYLATED COAGULATION FACTOR VIII [Suspect]
     Active Substance: ANTIHEMOPHILIC FACTOR, PEGYLATED (MW 20000) HUMAN SEQUENCE RECOMBINANT
     Dosage: 2500 INTERNATIONAL UNIT
     Route: 042
     Dates: start: 20200624
  16. PEGYLATED COAGULATION FACTOR VIII [Suspect]
     Active Substance: ANTIHEMOPHILIC FACTOR, PEGYLATED (MW 20000) HUMAN SEQUENCE RECOMBINANT
     Dosage: 2500 INTERNATIONAL UNIT, SINGLE
     Route: 042
     Dates: start: 20200626, end: 20200626
  17. PEGYLATED COAGULATION FACTOR VIII [Suspect]
     Active Substance: ANTIHEMOPHILIC FACTOR, PEGYLATED (MW 20000) HUMAN SEQUENCE RECOMBINANT
     Dosage: 2000 INTERNATIONAL UNIT, QD
     Route: 042
     Dates: start: 20200624, end: 20200626
  18. PEGYLATED COAGULATION FACTOR VIII [Suspect]
     Active Substance: ANTIHEMOPHILIC FACTOR, PEGYLATED (MW 20000) HUMAN SEQUENCE RECOMBINANT
     Dosage: 2500 INTERNATIONAL UNIT
     Route: 042
     Dates: start: 20200624

REACTIONS (1)
  - Upper respiratory tract infection [Recovered/Resolved]

NARRATIVE: CASE EVENT DATE: 20200625
